FAERS Safety Report 15677387 (Version 1)
Quarter: 2018Q4

REPORT INFORMATION
  Report Type: Spontaneous
  Country: US (occurrence: US)
  Receive Date: 20181130
  Receipt Date: 20181130
  Transmission Date: 20190205
  Serious: No
  Sender: FDA-Public Use
  Company Number: US-SA-2018SA328485

PATIENT
  Sex: Male

DRUGS (2)
  1. ASPERCREME NOS [Suspect]
     Active Substance: MENTHOL\TROLAMINE SALICYLATE
     Indication: BACK PAIN
  2. ASPERCREME NOS [Suspect]
     Active Substance: MENTHOL\TROLAMINE SALICYLATE
     Indication: ARTHRITIS

REACTIONS (2)
  - Expired product administered [Unknown]
  - Therapeutic response decreased [Unknown]
